FAERS Safety Report 24209518 (Version 1)
Quarter: 2024Q3

REPORT INFORMATION
  Report Type: Spontaneous
  Country: FR (occurrence: FR)
  Receive Date: 20240814
  Receipt Date: 20240814
  Transmission Date: 20241016
  Serious: Yes (Other)
  Sender: TEVA
  Company Number: None

PATIENT
  Age: 12 Year
  Sex: Female
  Weight: 48 kg

DRUGS (4)
  1. LEVOFLOXACIN [Suspect]
     Active Substance: LEVOFLOXACIN
     Indication: Bone tuberculosis
     Route: 048
     Dates: start: 20240129, end: 20240204
  2. RIFAMPIN [Concomitant]
     Active Substance: RIFAMPIN
     Indication: Bone tuberculosis
     Dosage: TIME INTERVAL: TOTAL: 10 MG/KG/DAY
     Route: 048
     Dates: start: 20230603, end: 20231117
  3. RIFAMPIN [Concomitant]
     Active Substance: RIFAMPIN
     Indication: Bone tuberculosis
     Dosage: 10 MG/KG/DAY
     Route: 048
     Dates: start: 20230428, end: 20230513
  4. RIFAMPIN [Concomitant]
     Active Substance: RIFAMPIN
     Indication: Bone tuberculosis
     Dosage: TIME INTERVAL: TOTAL: 6 MG/KG/DAY
     Route: 048
     Dates: start: 20231117, end: 20240112

REACTIONS (1)
  - Arthralgia [Recovered/Resolved]

NARRATIVE: CASE EVENT DATE: 20240203
